FAERS Safety Report 13397609 (Version 2)
Quarter: 2017Q3

REPORT INFORMATION
  Report Type: Report from Study
  Country: US (occurrence: US)
  Receive Date: 20170403
  Receipt Date: 20170711
  Transmission Date: 20171127
  Serious: Yes (Hospitalization)
  Sender: FDA-Public Use
  Company Number: US-BAYER-2017-054612

PATIENT
  Age: 62 Year
  Sex: Male

DRUGS (1)
  1. NEXAVAR [Suspect]
     Active Substance: SORAFENIB
     Indication: HEPATOCELLULAR CARCINOMA
     Dosage: 400 MG, BID
     Route: 048
     Dates: start: 20170211, end: 20170320

REACTIONS (4)
  - Blood potassium increased [None]
  - Drug ineffective [None]
  - Haemorrhagic diathesis [None]
  - Blood pressure fluctuation [None]

NARRATIVE: CASE EVENT DATE: 2017
